FAERS Safety Report 10537662 (Version 1)
Quarter: 2014Q4

REPORT INFORMATION
  Report Type: Spontaneous
  Country: US (occurrence: None)
  Receive Date: 20141016
  Receipt Date: 20141016
  Transmission Date: 20150529
  Serious: Yes (Other)
  Sender: FDA-Public Use
  Company Number: 2014SCPR008888

PATIENT
  Age: 60 Year
  Sex: Female

DRUGS (13)
  1. HYDROCHLOROTHIAZIDE (HYDROCHLOROTHIAZIDE) UNKNOWN [Concomitant]
     Active Substance: HYDROCHLOROTHIAZIDE
  2. FENTANYL TRANSDERMAL SYSTEM [Suspect]
     Active Substance: FENTANYL
     Indication: PAIN
     Dosage: 1 PATCH, EVERY 72 HRS, TRANSDERMAL
     Route: 062
     Dates: start: 20140113
  3. SOLOSTAR (SOLOSTER) UNKNOWN [Concomitant]
  4. HUMALOG (INSULIN LISPRO) UNKNOWN [Concomitant]
  5. LIPTOR (ATRORVASTATIN) UNKNOWN [Concomitant]
  6. ASPIRIN (ACETYSALICYLIC ACID) UNKNOWN [Concomitant]
  7. INVOKANA (INVOKANA) UNKNOWN [Concomitant]
  8. FENTANYL TRANSDERMAL SYSTEM [Suspect]
     Active Substance: FENTANYL
     Indication: NEUROPATHY PERIPHERAL
     Dosage: 1 PATCH, EVERY 72 HRS, TRANSDERMAL
     Route: 062
     Dates: start: 20140113
  9. FENTANYL TRANSDERMAL SYSTEM [Suspect]
     Active Substance: FENTANYL
     Indication: FIBROMYALGIA
     Dosage: 1 PATCH, EVERY 72 HRS, TRANSDERMAL
     Route: 062
     Dates: start: 20140113
  10. FENOFIBRATE (FENOFIBRATE) [Concomitant]
  11. OXYCODON (OXYCODONE HYDROCHLORIDE) [Concomitant]
  12. LISINOPRIL (LISINOPRIL) UNKNOWN, UNKNOWN [Concomitant]
     Active Substance: LISINOPRIL
  13. ATORVASTATIN (ATORVASTATIN) [Concomitant]
     Active Substance: ATORVASTATIN

REACTIONS (2)
  - Product adhesion issue [None]
  - Drug withdrawal syndrome [None]

NARRATIVE: CASE EVENT DATE: 20140113
